FAERS Safety Report 10398654 (Version 1)
Quarter: 2014Q3

REPORT INFORMATION
  Report Type: Spontaneous
  Country: US (occurrence: US)
  Receive Date: 20140821
  Receipt Date: 20140821
  Transmission Date: 20150326
  Serious: Yes (Death)
  Sender: FDA-Public Use
  Company Number: US-BEH-2014044539

PATIENT
  Age: 68 Year
  Sex: Male
  Weight: 69 kg

DRUGS (13)
  1. AUGMENTIN [Concomitant]
     Active Substance: AMOXICILLIN\CLAVULANATE POTASSIUM
  2. FORMOTEROL [Concomitant]
     Active Substance: FORMOTEROL
  3. ALEVE [Concomitant]
     Active Substance: NAPROXEN SODIUM
  4. SPIRIVA [Concomitant]
     Active Substance: TIOTROPIUM BROMIDE MONOHYDRATE
  5. LEVAQUIN [Concomitant]
     Active Substance: LEVOFLOXACIN
  6. BUDESONIDE. [Concomitant]
     Active Substance: BUDESONIDE
  7. ZEMAIRA [Suspect]
     Active Substance: .ALPHA.1-PROTEINASE INHIBITOR HUMAN
     Indication: ALPHA-1 ANTI-TRYPSIN DEFICIENCY
     Route: 042
  8. PERFOROMIST [Concomitant]
     Active Substance: FORMOTEROL FUMARATE DIHYDRATE
  9. ALBUTEROL. [Concomitant]
     Active Substance: ALBUTEROL
  10. NYSTATIN. [Concomitant]
     Active Substance: NYSTATIN
  11. CIPRO [Concomitant]
     Active Substance: CIPROFLOXACIN HYDROCHLORIDE
  12. OXYGEN. [Concomitant]
     Active Substance: OXYGEN
  13. PREDNISONE. [Concomitant]
     Active Substance: PREDNISONE

REACTIONS (1)
  - Diverticular perforation [Fatal]

NARRATIVE: CASE EVENT DATE: 20140806
